FAERS Safety Report 8799006 (Version 3)
Quarter: 2012Q4

REPORT INFORMATION
  Report Type: 
  Country: BE (occurrence: BE)
  Receive Date: 20120920
  Receipt Date: 20121101
  Transmission Date: 20130627
  Serious: Yes (Life-Threatening)
  Sender: FDA-Public Use
  Company Number: BE-NOVOPROD-359704

PATIENT
  Age: 58 Year
  Sex: Female
  Weight: 100 kg

DRUGS (8)
  1. VICTOZA [Suspect]
     Indication: TYPE 2 DIABETES MELLITUS
     Dosage: 1.2 mg, qd
     Route: 058
     Dates: start: 201108, end: 201204
  2. VICTOZA [Suspect]
     Dosage: 1.8 mg, qd
     Route: 058
     Dates: start: 201204, end: 20120828
  3. METFORMIN [Concomitant]
     Indication: TYPE 2 DIABETES MELLITUS
     Dosage: 850 mg, tid
     Route: 048
  4. GLICLAZIDE [Concomitant]
     Indication: TYPE 2 DIABETES MELLITUS
     Dosage: 60 mg, bid
     Route: 058
     Dates: end: 20120828
  5. ATORVASTATIN [Concomitant]
     Indication: HYPERCHOLESTEROLAEMIA
     Dosage: 10 mg, qd
     Route: 048
  6. PERINDOPRIL [Concomitant]
     Indication: HYPERTENSION
     Dosage: 5 mg, qd
     Route: 048
  7. BISOPROLOL [Concomitant]
     Indication: HYPERTENSION
     Dosage: 5 mg, qd
     Route: 048
  8. L-THYROXINE                        /00068001/ [Concomitant]
     Indication: HYPOTHYROIDISM
     Dosage: 150 ?g, qd
     Route: 048

REACTIONS (1)
  - Adenocarcinoma pancreas [Not Recovered/Not Resolved]
